FAERS Safety Report 5956408-6 (Version None)
Quarter: 2008Q4

REPORT INFORMATION
  Report Type: 
  Country: None (occurrence: None)
  Receive Date: 20081118
  Receipt Date: 20081112
  Transmission Date: 20090506
  Serious: Yes (Hospitalization)
  Sender: FDA-Public Use
  Company Number: JP-AVENTIS-200813296JP

PATIENT
  Age: 61 Year
  Sex: Male

DRUGS (1)
  1. FUROSEMIDE [Suspect]
     Dosage: DOSE: 40 MG
     Route: 048

REACTIONS (2)
  - SHOSHIN BERIBERI [None]
  - VITAMIN B1 DEFICIENCY [None]
